FAERS Safety Report 10767616 (Version 1)
Quarter: 2015Q1

REPORT INFORMATION
  Report Type: Spontaneous
  Country: US (occurrence: US)
  Receive Date: 20150205
  Receipt Date: 20150205
  Transmission Date: 20150721
  Serious: No
  Sender: FDA-Public Use
  Company Number: US-ELI_LILLY_AND_COMPANY-US201501004125

PATIENT
  Sex: Female

DRUGS (2)
  1. LANTUS [Concomitant]
     Active Substance: INSULIN GLARGINE
     Indication: PRODUCT USED FOR UNKNOWN INDICATION
     Dosage: 66 U, EACH MORNING
     Route: 065
  2. HUMALOG [Suspect]
     Active Substance: INSULIN LISPRO
     Indication: DIABETES MELLITUS
     Dosage: 5 U, TID
     Route: 065
     Dates: start: 20141214

REACTIONS (7)
  - Decreased appetite [Recovered/Resolved]
  - Pyrexia [Unknown]
  - Drug dose omission [Recovered/Resolved]
  - Cough [Unknown]
  - Influenza [Recovering/Resolving]
  - Inappropriate schedule of drug administration [Unknown]
  - Device use error [Unknown]

NARRATIVE: CASE EVENT DATE: 20150112
